FAERS Safety Report 26183580 (Version 2)
Quarter: 2025Q4

REPORT INFORMATION
  Report Type: Spontaneous
  Country: US (occurrence: US)
  Receive Date: 20251221
  Receipt Date: 20251221
  Transmission Date: 20260118
  Serious: Yes (Death, Other)
  Sender: GILEAD
  Company Number: US-GILEAD-2025-0741308

PATIENT
  Age: 65 Year
  Sex: Male
  Weight: 63.8 kg

DRUGS (2)
  1. YESCARTA [Suspect]
     Active Substance: AXICABTAGENE CILOLEUCEL
     Indication: Diffuse large B-cell lymphoma refractory
     Dosage: 68 ML
     Route: 042
     Dates: start: 20251201, end: 20251201
  2. YESCARTA [Suspect]
     Active Substance: AXICABTAGENE CILOLEUCEL
     Indication: Diffuse large B-cell lymphoma recurrent

REACTIONS (17)
  - Cardio-respiratory arrest [Fatal]
  - Pulseless electrical activity [Unknown]
  - Immune effector cell-associated HLH-like syndrome [Recovering/Resolving]
  - Epiglottic oedema [Recovered/Resolved]
  - Staphylococcal bacteraemia [Unknown]
  - Tumour lysis syndrome [Recovered/Resolved]
  - Hyperbilirubinaemia [Recovering/Resolving]
  - Mental impairment [Unknown]
  - Pneumonia [Unknown]
  - Atrial fibrillation [Unknown]
  - Cytokine release syndrome [Not Recovered/Not Resolved]
  - Febrile neutropenia [Unknown]
  - Hypoxia [Unknown]
  - Pulmonary oedema [Unknown]
  - Mucosal inflammation [Unknown]
  - Bradycardia [Unknown]
  - Pleural effusion [Unknown]

NARRATIVE: CASE EVENT DATE: 20251208
